FAERS Safety Report 7647726-4 (Version None)
Quarter: 2011Q3

REPORT INFORMATION
  Report Type: 
  Country: None (occurrence: None)
  Receive Date: 20110801
  Receipt Date: 20110801
  Transmission Date: 20111222
  Serious: Yes (Hospitalization)
  Sender: FDA-Public Use
  Company Number: None

PATIENT
  Age: 78 Year
  Sex: Male

DRUGS (12)
  1. COMBIGAN [Concomitant]
     Route: 047
  2. PLAVIX [Concomitant]
     Route: 048
  3. DORZOLAMIDE [Concomitant]
     Route: 047
  4. HYDRALAZINE HCL [Concomitant]
     Route: 048
  5. LIPITOR [Concomitant]
     Route: 048
  6. ENALAPRIL MALEATE [Suspect]
     Indication: HYPERTENSION
     Dosage: 20MG
     Route: 048
  7. LASIX [Concomitant]
     Route: 048
  8. LUMIGAN [Concomitant]
     Route: 047
  9. FERROUS SULFATE TAB [Concomitant]
     Route: 048
  10. AMLODIPINE [Concomitant]
     Route: 048
  11. TAMSULOSIN HCL [Concomitant]
     Route: 048
  12. IMDUR [Concomitant]
     Route: 048

REACTIONS (2)
  - ANGIOEDEMA [None]
  - DYSPNOEA [None]
